FAERS Safety Report 8280935-2 (Version None)
Quarter: 2012Q2

REPORT INFORMATION
  Report Type: 
  Country: None (occurrence: None)
  Receive Date: 20120412
  Receipt Date: 20120409
  Transmission Date: 20120825
  Serious: Yes (Other)
  Sender: FDA-Public Use
  Company Number: PR-ABBOTT-12P-131-0888892-00

PATIENT
  Sex: Female

DRUGS (9)
  1. HUMIRA [Suspect]
     Route: 058
     Dates: start: 20120228
  2. PLAQUENIL [Concomitant]
     Indication: CEREBROVASCULAR ACCIDENT
     Route: 048
  3. ALLEGRA [Concomitant]
     Indication: SINUSITIS
  4. EXFORGE [Concomitant]
     Indication: HYPERTENSION
     Dosage: 10/320MG
     Route: 048
  5. SYNTHROID [Concomitant]
     Indication: PRODUCT USED FOR UNKNOWN INDICATION
     Route: 048
  6. HUMIRA [Suspect]
     Indication: RHEUMATOID ARTHRITIS
     Route: 058
     Dates: end: 20111120
  7. THEOPHYLLINE [Concomitant]
     Indication: ASTHMA
     Route: 048
  8. PLAVIX [Concomitant]
     Indication: CEREBROVASCULAR ACCIDENT
     Route: 048
  9. PROVENTIL [Concomitant]
     Indication: ASTHMA
     Route: 055

REACTIONS (4)
  - CEREBROVASCULAR ACCIDENT [None]
  - ASTHMA [None]
  - NASOPHARYNGITIS [None]
  - SINUSITIS [None]
